FAERS Safety Report 14915698 (Version 1)
Quarter: 2018Q2

REPORT INFORMATION
  Report Type: Report from Study
  Country: CO (occurrence: CO)
  Receive Date: 20180518
  Receipt Date: 20180518
  Transmission Date: 20180711
  Serious: Yes (Hospitalization)
  Sender: FDA-Public Use
  Company Number: PHHY2018CO001417

PATIENT
  Sex: Female

DRUGS (1)
  1. TASIGNA [Suspect]
     Active Substance: NILOTINIB
     Indication: CHRONIC MYELOID LEUKAEMIA
     Dosage: 150 MG, TWO CAPSULES EVERY 12 HOURS
     Route: 048
     Dates: start: 20180426

REACTIONS (3)
  - Depression [Unknown]
  - General physical condition abnormal [Unknown]
  - Pallor [Unknown]
